FAERS Safety Report 6013450-7 (Version None)
Quarter: 2008Q4

REPORT INFORMATION
  Report Type: 
  Country: None (occurrence: None)
  Receive Date: 20081219
  Receipt Date: 20081016
  Transmission Date: 20090506
  Serious: Yes (Death, Hospitalization, Other)
  Sender: FDA-Public Use
  Company Number: AU-PFIZER INC-2008088125

PATIENT

DRUGS (5)
  1. SUTENT [Suspect]
     Indication: METASTATIC RENAL CELL CARCINOMA
     Dosage: 50 MG, UNK
     Route: 048
     Dates: start: 20080804, end: 20080829
  2. OXYCONTIN [Concomitant]
     Route: 048
  3. ENDONE [Concomitant]
     Route: 048
  4. GABAPENTIN [Concomitant]
     Route: 048
  5. DEXAMETHASONE [Concomitant]
     Route: 048

REACTIONS (2)
  - DISEASE PROGRESSION [None]
  - METASTATIC RENAL CELL CARCINOMA [None]
